FAERS Safety Report 5050530-7 (Version None)
Quarter: 2006Q3

REPORT INFORMATION
  Report Type: 
  Country: None (occurrence: None)
  Receive Date: 20060707
  Receipt Date: 20060621
  Transmission Date: 20061208
  Serious: Yes (Hospitalization)
  Sender: FDA-Public Use
  Company Number: S06-GER-02616-01

PATIENT
  Age: 22 Year
  Sex: Male
  Weight: 120 kg

DRUGS (2)
  1. ESCITALOPRAM OXALATE [Suspect]
     Indication: SUICIDE ATTEMPT
     Dosage: 20 MG QD PO
     Route: 048
     Dates: start: 20050801
  2. TOPAMAX [Suspect]
     Indication: WEIGHT CONTROL
     Dates: start: 20060101

REACTIONS (3)
  - CONVULSION [None]
  - DRUG INTERACTION [None]
  - WEIGHT INCREASED [None]
